FAERS Safety Report 12550476 (Version 1)
Quarter: 2016Q3

REPORT INFORMATION
  Report Type: Spontaneous
  Country: JP (occurrence: JP)
  Receive Date: 20160712
  Receipt Date: 20160712
  Transmission Date: 20161109
  Serious: Yes (Other)
  Sender: FDA-Public Use
  Company Number: JP-GILEAD-2016-0221059

PATIENT
  Age: 90 Year
  Sex: Female

DRUGS (6)
  1. HARVONI [Suspect]
     Active Substance: LEDIPASVIR\SOFOSBUVIR
     Indication: PRODUCT USED FOR UNKNOWN INDICATION
     Dosage: UNK
     Route: 048
     Dates: start: 201601, end: 201603
  2. AMLODIN [Concomitant]
     Active Substance: AMLODIPINE BESYLATE
  3. COVERSYL                           /00790702/ [Concomitant]
     Active Substance: PERINDOPRIL
  4. ADALAT [Concomitant]
     Active Substance: NIFEDIPINE
  5. LENDORMIN [Concomitant]
     Active Substance: BROTIZOLAM
  6. MAGMITT [Concomitant]
     Active Substance: MAGNESIUM OXIDE

REACTIONS (1)
  - Neutrophil count decreased [Unknown]
